FAERS Safety Report 12965693 (Version 1)
Quarter: 2016Q4

REPORT INFORMATION
  Report Type: Spontaneous
  Country: US (occurrence: US)
  Receive Date: 20161122
  Receipt Date: 20161122
  Transmission Date: 20170207
  Serious: Yes (Other)
  Sender: FDA-Public Use
  Company Number: US-TEVA-713466USA

PATIENT
  Sex: Female

DRUGS (1)
  1. JOLESSA [Suspect]
     Active Substance: ETHINYL ESTRADIOL\LEVONORGESTREL
     Indication: CONTRACEPTION
     Dosage: 0.15/0.03MG
     Dates: start: 201604

REACTIONS (7)
  - Musculoskeletal chest pain [Unknown]
  - Back pain [Unknown]
  - Pulmonary infarction [Unknown]
  - Dyspnoea [Unknown]
  - Heart rate increased [Unknown]
  - Pulmonary embolism [Unknown]
  - Right ventricular enlargement [Unknown]

NARRATIVE: CASE EVENT DATE: 2016
